FAERS Safety Report 6656357-4 (Version None)
Quarter: 2010Q1

REPORT INFORMATION
  Report Type: 
  Country: None (occurrence: None)
  Receive Date: 20100317
  Receipt Date: 20091124
  Transmission Date: 20100710
  Serious: No
  Sender: FDA-Public Use
  Company Number: DSA_42076_2009

PATIENT
  Sex: Male

DRUGS (2)
  1. XENAZINE [Suspect]
     Indication: CHOREA
     Dosage: (12.5 MG TID ORAL)
     Route: 048
     Dates: start: 20091102
  2. TRAZODONE [Concomitant]

REACTIONS (2)
  - MALAISE [None]
  - SLEEP DISORDER [None]
